FAERS Safety Report 14940499 (Version 2)
Quarter: 2018Q2

REPORT INFORMATION
  Report Type: Spontaneous
  Country: US (occurrence: US)
  Receive Date: 20180525
  Receipt Date: 20180529
  Transmission Date: 20180711
  Serious: Yes (Other)
  Sender: FDA-Public Use
  Company Number: US-PFIZER INC-2018211644

PATIENT
  Age: 57 Year
  Sex: Female

DRUGS (1)
  1. XALKORI [Suspect]
     Active Substance: CRIZOTINIB
     Indication: BONE NEOPLASM
     Dosage: 250 MG, TWICE DAILY
     Dates: start: 20180515

REACTIONS (3)
  - Vocal cord paralysis [Unknown]
  - Product use in unapproved indication [Unknown]
  - Monoplegia [Unknown]

NARRATIVE: CASE EVENT DATE: 20180515
